FAERS Safety Report 7917901-X (Version None)
Quarter: 2011Q4

REPORT INFORMATION
  Report Type: 
  Country: None (occurrence: None)
  Receive Date: 20111116
  Receipt Date: 20111108
  Transmission Date: 20120403
  Serious: Yes (Other)
  Sender: FDA-Public Use
  Company Number: US-PURDUE-USA-2011-0077501

PATIENT
  Sex: Female
  Weight: 64.853 kg

DRUGS (7)
  1. IMITREX [Concomitant]
     Indication: PRODUCT USED FOR UNKNOWN INDICATION
     Dosage: 100 MG, PRN
     Route: 048
  2. ROXYCODONE [Concomitant]
     Indication: PAIN
     Dosage: 240 MG, DAILY
     Route: 048
  3. NORCO [Concomitant]
     Indication: PAIN
     Dosage: 10/325 TWO TABLETS TWICE DAILY
  4. OXYCONTIN [Suspect]
     Indication: PRODUCT USED FOR UNKNOWN INDICATION
     Dosage: UNK
     Dates: start: 20081224
  5. SOMA [Concomitant]
     Indication: MYALGIA
     Dosage: 1400 MG, DAILY
     Route: 048
  6. XANAX [Concomitant]
     Indication: PRODUCT USED FOR UNKNOWN INDICATION
     Dosage: 2 MG, QID
  7. PREVACID [Concomitant]
     Indication: PRODUCT USED FOR UNKNOWN INDICATION
     Dosage: 30 MG, DAILY
     Route: 048

REACTIONS (1)
  - KNEE OPERATION [None]
